FAERS Safety Report 4459676-5 (Version None)
Quarter: 2004Q3

REPORT INFORMATION
  Report Type: 
  Country: None (occurrence: None)
  Receive Date: 20040923
  Receipt Date: 20040913
  Transmission Date: 20050211
  Serious: Yes (Death, Hospitalization)
  Sender: FDA-Public Use
  Company Number: US-JNJFOC-20040903712

PATIENT
  Age: 48 Year
  Sex: Male

DRUGS (2)
  1. EXTRA STRENGTH TYLENOL PM (ACETAMINOPHEN / DIPHENYDRAMINE HCL) UNSPECI [Suspect]
     Indication: SUICIDE ATTEMPT
     Dosage: 34 DOSE(S), 1 IN 1 TOTAL
  2. ETHANOL (ETHANOL) [Suspect]
     Indication: SUICIDE ATTEMPT

REACTIONS (10)
  - AGITATION [None]
  - ALCOHOL USE [None]
  - CHEST DISCOMFORT [None]
  - COMPLETED SUICIDE [None]
  - DYSPNOEA [None]
  - HYPOTENSION [None]
  - JAUNDICE [None]
  - MULTI-ORGAN FAILURE [None]
  - OVERDOSE [None]
  - RESPIRATORY ARREST [None]
